FAERS Safety Report 9019318 (Version 1)
Quarter: 2013Q1

REPORT INFORMATION
  Report Type: Spontaneous
  Country: AU (occurrence: AU)
  Receive Date: 20130118
  Receipt Date: 20130118
  Transmission Date: 20140127
  Serious: Yes (Hospitalization, Other)
  Sender: FDA-Public Use
  Company Number: AU-ABBOTT-13P-008-1036754-00

PATIENT
  Age: 57 Year
  Sex: Male

DRUGS (26)
  1. CLARITHROMYCIN [Suspect]
     Indication: RHODOCOCCUS INFECTION
     Route: 048
  2. PREDNISONE [Concomitant]
     Indication: IMMUNOSUPPRESSION
  3. PREDNISONE [Concomitant]
     Dates: start: 201105
  4. TACROLIMUS [Concomitant]
     Indication: IMMUNOSUPPRESSION
  5. TACROLIMUS [Concomitant]
  6. MYCOPHENOLATE [Concomitant]
     Indication: IMMUNOSUPPRESSION
  7. MYCOPHENOLATE [Concomitant]
     Dates: start: 201105
  8. MYCOPHENOLATE [Concomitant]
     Dates: start: 201106
  9. AZITHROMYCIN [Concomitant]
     Indication: PRODUCT USED FOR UNKNOWN INDICATION
     Route: 042
  10. AZITHROMYCIN [Concomitant]
     Route: 048
  11. AZITHROMYCIN [Concomitant]
     Route: 042
     Dates: start: 201010
  12. AZITHROMYCIN [Concomitant]
     Route: 048
     Dates: start: 201108
  13. AZITHROMYCIN [Concomitant]
     Route: 048
     Dates: start: 201109
  14. AZITHROMYCIN [Concomitant]
     Route: 048
     Dates: start: 201109
  15. MEROPENEM [Concomitant]
     Indication: PRODUCT USED FOR UNKNOWN INDICATION
     Route: 042
  16. MEROPENEM [Concomitant]
     Route: 042
     Dates: start: 201105
  17. MEROPENEM [Concomitant]
     Route: 042
     Dates: start: 201106
  18. MEROPENEM [Concomitant]
     Route: 042
     Dates: start: 201108
  19. MEROPENEM [Concomitant]
     Route: 042
     Dates: start: 201109
  20. MEROPENEM [Concomitant]
     Route: 042
     Dates: start: 201111
  21. VANCOMYCIN [Concomitant]
     Indication: PRODUCT USED FOR UNKNOWN INDICATION
     Route: 042
     Dates: start: 201105
  22. VANCOMYCIN [Concomitant]
     Route: 042
     Dates: start: 201106, end: 201108
  23. VANCOMYCIN [Concomitant]
     Route: 042
     Dates: start: 201111
  24. RIFAMPICIN [Concomitant]
     Indication: PRODUCT USED FOR UNKNOWN INDICATION
     Route: 048
     Dates: start: 201106
  25. LINEZOLID [Concomitant]
     Indication: PRODUCT USED FOR UNKNOWN INDICATION
     Route: 048
     Dates: end: 201109
  26. LIPOSOMAL AMHOTERICIN B [Concomitant]
     Indication: PRODUCT USED FOR UNKNOWN INDICATION
     Dates: start: 201111

REACTIONS (1)
  - Rhodococcus infection [Recovering/Resolving]
